FAERS Safety Report 6863775-8 (Version None)
Quarter: 2010Q3

REPORT INFORMATION
  Report Type: 
  Country: None (occurrence: None)
  Receive Date: 20100721
  Receipt Date: 20080314
  Transmission Date: 20110219
  Serious: No
  Sender: FDA-Public Use
  Company Number: US-PFIZER INC-2008021667

PATIENT
  Sex: Female
  Weight: 78.5 kg

DRUGS (4)
  1. CHANTIX [Suspect]
     Indication: SMOKING CESSATION THERAPY
     Dates: start: 20080225
  2. XANAX [Suspect]
     Indication: INITIAL INSOMNIA
  3. HALCION [Suspect]
     Indication: INITIAL INSOMNIA
  4. ZETIA [Concomitant]

REACTIONS (3)
  - INITIAL INSOMNIA [None]
  - UPPER EXTREMITY MASS [None]
  - WEIGHT INCREASED [None]
